FAERS Safety Report 22680251 (Version 2)
Quarter: 2023Q4

REPORT INFORMATION
  Report Type: Spontaneous
  Country: US (occurrence: US)
  Receive Date: 20230707
  Receipt Date: 20231011
  Transmission Date: 20240110
  Serious: Yes (Other)
  Sender: FDA-Public Use
  Company Number: US-BRISTOL-MYERS SQUIBB COMPANY-2023-094950

PATIENT
  Age: 65 Year
  Sex: Female

DRUGS (2)
  1. REVLIMID [Suspect]
     Active Substance: LENALIDOMIDE
     Indication: Follicular lymphoma stage III
     Dosage: FREQUENCY: OTHER
     Route: 048
  2. REVLIMID [Suspect]
     Active Substance: LENALIDOMIDE
     Dosage: QD (EVERYDAY) FOR 21 DAYS AND 7 DAYS OFF
     Route: 048

REACTIONS (10)
  - Platelet count decreased [Unknown]
  - Dry skin [Unknown]
  - Gingival bleeding [Unknown]
  - Glossodynia [Unknown]
  - Hordeolum [Unknown]
  - Vision blurred [Unknown]
  - Rhinorrhoea [Unknown]
  - Sensitive skin [Unknown]
  - Dizziness [Unknown]
  - Muscular weakness [Unknown]

NARRATIVE: CASE EVENT DATE: 20230607
